FAERS Safety Report 5630093-5 (Version None)
Quarter: 2008Q1

REPORT INFORMATION
  Report Type: 
  Country: None (occurrence: None)
  Receive Date: 20080218
  Receipt Date: 20080206
  Transmission Date: 20080703
  Serious: Yes (Death, Hospitalization)
  Sender: FDA-Public Use
  Company Number: ZW-GILEAD-2007-0014469

PATIENT
  Age: 34 Year
  Sex: Female
  Weight: 47.6 kg

DRUGS (3)
  1. EMTRICITABINE/TENOFOVIR DISOPROXIL FUMARATE [Suspect]
     Indication: HIV INFECTION
     Route: 048
     Dates: start: 20071105, end: 20071120
  2. ALUVIA [Suspect]
     Indication: HIV INFECTION
     Route: 048
     Dates: start: 20071105
  3. FLUCONAZOLE [Concomitant]
     Dates: start: 20071115, end: 20071120

REACTIONS (17)
  - ALANINE AMINOTRANSFERASE INCREASED [None]
  - ASPARTATE AMINOTRANSFERASE INCREASED [None]
  - BLOOD BILIRUBIN INCREASED [None]
  - BLOOD POTASSIUM DECREASED [None]
  - BLOOD SODIUM INCREASED [None]
  - COUGH [None]
  - DEHYDRATION [None]
  - DISEASE PROGRESSION [None]
  - GASTROENTERITIS CRYPTOSPORIDIAL [None]
  - HAEMOGLOBIN DECREASED [None]
  - HEPATIC FUNCTION ABNORMAL [None]
  - HIV INFECTION [None]
  - HYPOTENSION [None]
  - HYPOTHERMIA [None]
  - IMMUNE RECONSTITUTION SYNDROME [None]
  - LETHARGY [None]
  - NO THERAPEUTIC RESPONSE [None]
